FAERS Safety Report 20805864 (Version 1)
Quarter: 2022Q2

REPORT INFORMATION
  Report Type: Spontaneous
  Country: US (occurrence: US)
  Receive Date: 20220510
  Receipt Date: 20220510
  Transmission Date: 20220721
  Serious: No
  Sender: FDA-Public Use
  Company Number: US-ALLERGAN-2205517US

PATIENT
  Age: 49 Year
  Sex: Female

DRUGS (5)
  1. VUITY [Suspect]
     Active Substance: PILOCARPINE HYDROCHLORIDE
     Indication: Presbyopia
     Dosage: 2 GTT
     Route: 047
     Dates: start: 20220210, end: 20220210
  2. EYSUVIS [Concomitant]
     Active Substance: LOTEPREDNOL ETABONATE
     Indication: Dry eye
     Dosage: 2 GTT
     Route: 047
  3. LASIX [Concomitant]
     Active Substance: FUROSEMIDE
  4. PLAQUENIL [Concomitant]
     Active Substance: HYDROXYCHLOROQUINE SULFATE
  5. FLONASE [Concomitant]
     Active Substance: FLUTICASONE PROPIONATE

REACTIONS (1)
  - Conjunctival haemorrhage [Recovered/Resolved]

NARRATIVE: CASE EVENT DATE: 20220210
